FAERS Safety Report 7584760-7 (Version None)
Quarter: 2011Q2

REPORT INFORMATION
  Report Type: 
  Country: None (occurrence: None)
  Receive Date: 20110630
  Receipt Date: 20110621
  Transmission Date: 20111010
  Serious: Yes (Other)
  Sender: FDA-Public Use
  Company Number: PHHY2011US46986

PATIENT
  Sex: Female

DRUGS (11)
  1. AMLODIPINE [Concomitant]
  2. BENICAR [Concomitant]
     Dosage: 20 MG, DAILY
     Route: 048
  3. MULTI-VITAMINS [Concomitant]
  4. NORVASC [Concomitant]
     Dosage: 5 MG, DAILY
     Route: 048
  5. GILENYA [Suspect]
     Indication: MULTIPLE SCLEROSIS
     Dosage: 0.5 MG, QD
     Route: 048
     Dates: start: 20110421
  6. ADVAIR DISKUS 100/50 [Concomitant]
  7. PREVACID [Concomitant]
  8. CITRACAL [Concomitant]
  9. ETHINYL ESTRADIOL AND NORETHINDRONE [Concomitant]
     Dosage: 0.5/35 (UNIT UNKNOWN)
     Route: 048
  10. DITROPAN XL [Concomitant]
     Dosage: 10 MG, DAILY
     Route: 048
  11. OXYBUTYNIN [Concomitant]

REACTIONS (4)
  - DRUG INEFFECTIVE [None]
  - MULTIPLE SCLEROSIS RELAPSE [None]
  - UPPER RESPIRATORY TRACT INFECTION [None]
  - GAIT DISTURBANCE [None]
